FAERS Safety Report 25495491 (Version 1)
Quarter: 2025Q2

REPORT INFORMATION
  Report Type: Spontaneous
  Country: GB (occurrence: GB)
  Receive Date: 20250630
  Receipt Date: 20250630
  Transmission Date: 20250717
  Serious: Yes (Other)
  Sender: DR REDDYS
  Company Number: None

PATIENT
  Age: 14 Year
  Sex: Female

DRUGS (3)
  1. MONTELUKAST [Suspect]
     Active Substance: MONTELUKAST
     Indication: Asthma
     Dosage: 5MG ONCE DAILY
     Dates: start: 20250403, end: 20250517
  2. SYMBICORT [Concomitant]
     Active Substance: BUDESONIDE\FORMOTEROL FUMARATE DIHYDRATE
     Indication: Asthma
  3. ALBUTEROL [Concomitant]
     Active Substance: ALBUTEROL
     Indication: Asthma

REACTIONS (1)
  - Mood altered [Recovering/Resolving]

NARRATIVE: CASE EVENT DATE: 20250501
